FAERS Safety Report 4705382-9 (Version None)
Quarter: 2005Q3

REPORT INFORMATION
  Report Type: 
  Country: None (occurrence: None)
  Receive Date: 20050701
  Receipt Date: 20050525
  Transmission Date: 20060218
  Serious: Yes (Life-Threatening, Hospitalization, Disabling, Other)
  Sender: FDA-Public Use
  Company Number: US-GLAXOSMITHKLINE-A0560141A

PATIENT
  Age: 42 Year
  Sex: Male

DRUGS (6)
  1. WELLBUTRIN XL [Suspect]
     Indication: DEPRESSION
     Route: 048
     Dates: start: 20050516, end: 20050523
  2. TORADOL [Concomitant]
     Indication: PAIN
     Dosage: 10MG FOUR TIMES PER DAY
     Route: 048
     Dates: start: 20050523
  3. TOPROL-XL [Concomitant]
     Indication: HYPERTENSION
  4. ULTRAM [Concomitant]
     Indication: PAIN
     Dates: start: 20050501, end: 20050523
  5. BIAXIN XL [Concomitant]
     Dates: start: 20050523
  6. LORTAB [Concomitant]
     Dates: start: 20050517

REACTIONS (6)
  - ACCIDENTAL OVERDOSE [None]
  - AMNESIA [None]
  - BLOOD PRESSURE INCREASED [None]
  - CONFUSIONAL STATE [None]
  - DRUG INEFFECTIVE [None]
  - MEDICATION ERROR [None]
